FAERS Safety Report 18517214 (Version 1)
Quarter: 2020Q4

REPORT INFORMATION
  Report Type: Report from Study
  Country: MX (occurrence: MX)
  Receive Date: 20201118
  Receipt Date: 20201118
  Transmission Date: 20210114
  Serious: Yes (Death, Other)
  Sender: FDA-Public Use
  Company Number: MX-ASTRAZENECA-2020SF52222

PATIENT
  Age: 62 Year
  Sex: Male
  Weight: 63 kg

DRUGS (3)
  1. IMFINZI [Suspect]
     Active Substance: DURVALUMAB
     Dosage: (500MG / 10ML) IN A 10 ML
     Route: 042
  2. IMFINZI [Suspect]
     Active Substance: DURVALUMAB
     Dosage: 120 MG / 2.4ML IN A 10 ML VIAL
     Route: 042
  3. IMFINZI [Suspect]
     Active Substance: DURVALUMAB
     Dosage: 600.0MG UNKNOWN
     Route: 042

REACTIONS (2)
  - Pneumonia [Fatal]
  - Asthenia [Unknown]
